FAERS Safety Report 10342831 (Version 1)
Quarter: 2014Q3

REPORT INFORMATION
  Report Type: Spontaneous
  Country: US (occurrence: US)
  Receive Date: 20140725
  Receipt Date: 20140725
  Transmission Date: 20150326
  Serious: Yes (Other)
  Sender: FDA-Public Use
  Company Number: PHHY2014US090711

PATIENT
  Sex: Female

DRUGS (2)
  1. PARLODEL [Suspect]
     Active Substance: BROMOCRIPTINE MESYLATE
     Indication: HYPOTHALAMO-PITUITARY DISORDER
     Dosage: UNK UKN, UNK
     Route: 048
     Dates: start: 1995, end: 2013
  2. BROMOCRIPTINE [Suspect]
     Active Substance: BROMOCRIPTINE
     Indication: HYPOTHALAMO-PITUITARY DISORDER
     Dosage: UNK UKN, UNK
     Route: 048

REACTIONS (6)
  - Immune system disorder [Unknown]
  - Local swelling [Unknown]
  - Burning sensation [Not Recovered/Not Resolved]
  - Muscle contractions involuntary [Not Recovered/Not Resolved]
  - Viral infection [Unknown]
  - Respiratory tract infection [Unknown]
